FAERS Safety Report 8600273 (Version 2)
Quarter: 2013Q3

REPORT INFORMATION
  Report Type: Spontaneous
  Country: US (occurrence: US)
  Receive Date: 20120606
  Receipt Date: 20130726
  Transmission Date: 20140515
  Serious: No
  Sender: FDA-Public Use
  Company Number: US-ASTRAZENECA-2012SE35215

PATIENT
  Age: 56 Year
  Sex: Male

DRUGS (18)
  1. NEXIUM [Suspect]
     Indication: GASTROOESOPHAGEAL REFLUX DISEASE
     Route: 048
     Dates: start: 2001, end: 2012
  2. NEXIUM [Suspect]
     Indication: GASTROOESOPHAGEAL REFLUX DISEASE
     Route: 048
     Dates: start: 2001, end: 2012
  3. PRILOSEC [Suspect]
     Indication: GASTROOESOPHAGEAL REFLUX DISEASE
     Route: 048
  4. PREVACID [Concomitant]
  5. PEPCID [Concomitant]
  6. ZANTAC [Concomitant]
  7. TUMS [Concomitant]
  8. PEPTO [Concomitant]
  9. ROLAIDS [Concomitant]
  10. MYLANTA [Concomitant]
  11. ALKA SELTZER [Concomitant]
  12. CALCIUM [Concomitant]
     Indication: BONE DISORDER
  13. VIT D [Concomitant]
     Indication: BONE DISORDER
  14. ZOLOFT [Concomitant]
     Indication: DEPRESSION
  15. HCTZ [Concomitant]
     Indication: BLOOD PRESSURE
  16. ASPIRIN [Concomitant]
  17. MULTI VITAMIN [Concomitant]
  18. PROSTATE HEALTH [Concomitant]
     Indication: PROSTATE CANCER

REACTIONS (7)
  - Osteoporosis [Unknown]
  - Arthritis [Unknown]
  - Calcium deficiency [Unknown]
  - Cataract [Unknown]
  - Diabetes mellitus [Unknown]
  - Multiple fractures [Unknown]
  - Depression [Unknown]
